FAERS Safety Report 14307825 (Version 1)
Quarter: 2017Q4

REPORT INFORMATION
  Report Type: Spontaneous
  Country: IT (occurrence: IT)
  Receive Date: 20171220
  Receipt Date: 20171220
  Transmission Date: 20180321
  Serious: Yes (Death, Life-Threatening, Hospitalization)
  Sender: FDA-Public Use
  Company Number: IT-CIPLA LTD.-2017IT23275

PATIENT

DRUGS (10)
  1. LEVOFLOXACIN. [Interacting]
     Active Substance: LEVOFLOXACIN
     Dosage: 125 MG, MAINTENANCE DOSE, 1 DAY
     Route: 048
     Dates: start: 20150522
  2. FENTANYL. [Interacting]
     Active Substance: FENTANYL
     Indication: ISCHAEMIC LIMB PAIN
     Dosage: 25 ?G, 1 HOUR
     Route: 062
     Dates: start: 20150528, end: 20150602
  3. FENTANYL. [Interacting]
     Active Substance: FENTANYL
     Dosage: 200 ?G, UNK
     Route: 065
  4. FENTANYL. [Interacting]
     Active Substance: FENTANYL
     Dosage: 100 ?G, 1 TABLET UPGRADEABLE TO 200 MCG.
     Route: 048
     Dates: start: 20150602, end: 20150602
  5. VANCOMYCIN [Concomitant]
     Active Substance: VANCOMYCIN
     Dosage: BY A SWAB APPLIED TO A LEFT FOOT ULCER POSITIVE FOR STAPHYLOCOCCUS AUREUS
     Route: 061
  6. LEVOFLOXACIN. [Suspect]
     Active Substance: LEVOFLOXACIN
     Indication: STAPHYLOCOCCAL INFECTION
     Dosage: 500 MG, LOADING DOSE, IN TOTAL
     Route: 048
     Dates: start: 20150521, end: 20150521
  7. FENTANYL. [Interacting]
     Active Substance: FENTANYL
     Indication: PROCEDURAL PAIN
     Dosage: 12 ?G, 1 HOUR
     Route: 062
     Dates: start: 20150521, end: 20150528
  8. VANCOMYCIN [Concomitant]
     Active Substance: VANCOMYCIN
     Dosage: 500 MG, 1 CYCLICAL
     Route: 042
     Dates: start: 20150522
  9. VANCOMYCIN [Concomitant]
     Active Substance: VANCOMYCIN
     Indication: STAPHYLOCOCCAL INFECTION
     Dosage: 1 G, LOADING DOSE, IN TOTAL
     Route: 065
     Dates: start: 20150521, end: 20150521
  10. RIFAMPICIN [Interacting]
     Active Substance: RIFAMPIN
     Indication: STAPHYLOCOCCAL INFECTION
     Dosage: 300 MG, DAILY
     Route: 042
     Dates: start: 20150521

REACTIONS (10)
  - Tremor [Recovered/Resolved]
  - Altered state of consciousness [Recovered/Resolved]
  - Overdose [Unknown]
  - Toxicity to various agents [Unknown]
  - Somnolence [Recovered/Resolved]
  - Drug interaction [Unknown]
  - Miosis [Recovered/Resolved]
  - Status epilepticus [Recovered/Resolved]
  - Hallucination [Recovered/Resolved]
  - Sopor [Recovered/Resolved]

NARRATIVE: CASE EVENT DATE: 20150602
